FAERS Safety Report 10026741 (Version 2)
Quarter: 2014Q1

REPORT INFORMATION
  Report Type: Spontaneous
  Country: JP (occurrence: None)
  Receive Date: 20140318
  Receipt Date: 20140326
  Transmission Date: 20141002
  Serious: Yes (Death, Other)
  Sender: FDA-Public Use
  Company Number: JP-014936

PATIENT
  Age: 86 Year
  Sex: Male

DRUGS (7)
  1. DEGARELIX (GONAX) 240 MG [Suspect]
     Indication: PROSTATE CANCER
     Route: 058
     Dates: start: 20140125, end: 20140225
  2. CASODEX [Concomitant]
  3. BAYASPIRIN [Concomitant]
  4. PLAVIX [Concomitant]
  5. LIVALO [Concomitant]
  6. DEPAS [Concomitant]
  7. FRANDOL [Concomitant]

REACTIONS (5)
  - Death [None]
  - Adverse event [None]
  - Cardiac failure [None]
  - Pulmonary oedema [None]
  - Prostate cancer [None]
